FAERS Safety Report 4451101-3 (Version None)
Quarter: 2004Q3

REPORT INFORMATION
  Report Type: 
  Country: None (occurrence: None)
  Receive Date: 20040916
  Receipt Date: 20040722
  Transmission Date: 20050211
  Serious: Yes (Death, Hospitalization)
  Sender: FDA-Public Use
  Company Number: 200412399JP

PATIENT
  Age: 65 Year
  Sex: Female
  Weight: 46.9 kg

DRUGS (21)
  1. ARAVA [Suspect]
     Indication: RHEUMATOID ARTHRITIS
     Route: 048
     Dates: start: 20040513, end: 20040529
  2. PREDONINE [Concomitant]
     Route: 048
     Dates: start: 20040610, end: 20040803
  3. MOBIC [Concomitant]
     Indication: PAIN
     Route: 048
     Dates: end: 20040708
  4. VOLTAREN [Concomitant]
     Indication: PAIN
     Route: 048
     Dates: start: 20040708
  5. 8-HOUR BAYER [Concomitant]
     Route: 048
     Dates: end: 20040708
  6. NORVASK [Concomitant]
     Route: 048
     Dates: end: 20040708
  7. PARIET [Concomitant]
     Route: 048
     Dates: end: 20040708
  8. SELBEX [Concomitant]
     Indication: GASTRITIS
     Route: 048
     Dates: end: 20040708
  9. PAXIL [Concomitant]
     Route: 048
     Dates: end: 20040708
  10. SUVENYL [Concomitant]
     Dosage: DOSE: 1A FOR EACH OF BOTH GENICULA OR BOTH SHOULDER
     Route: 042
     Dates: start: 20040513
  11. SOLU-MEDROL [Concomitant]
     Route: 042
     Dates: start: 20040729, end: 20040814
  12. NEORAL [Concomitant]
     Route: 048
     Dates: start: 20040802
  13. TIENAM [Concomitant]
     Route: 042
     Dates: start: 20040804
  14. PRODIF [Concomitant]
     Route: 042
     Dates: start: 20040810
  15. AMLODIN [Concomitant]
     Dosage: DOSE: 2 TABLETS /DAY
     Route: 048
  16. MUCOSTA [Concomitant]
     Dosage: DOSE: 1 TABLET/DAY
     Route: 048
  17. BAKTAR [Concomitant]
     Dosage: DOSE: 9 TABLETS /DAY
     Route: 048
     Dates: start: 20040722, end: 20040723
  18. QUESTRAN [Concomitant]
     Route: 048
     Dates: start: 20040722
  19. MINOMYCIN [Concomitant]
     Route: 048
     Dates: start: 20040716, end: 20040726
  20. PACIL                                   /JPN/ [Concomitant]
     Dates: start: 20040726, end: 20040802
  21. ANTIFUNGALS FOR SYSTEMIC USE [Concomitant]
     Route: 048
     Dates: start: 20040818, end: 20040822

REACTIONS (21)
  - ARTHRALGIA [None]
  - BLOOD LACTATE DEHYDROGENASE INCREASED [None]
  - BRONCHITIS CHRONIC [None]
  - C-REACTIVE PROTEIN INCREASED [None]
  - CHILLS [None]
  - CONDITION AGGRAVATED [None]
  - DECREASED APPETITE [None]
  - DISEASE RECURRENCE [None]
  - DIZZINESS [None]
  - DYSPNOEA [None]
  - EOSINOPHILIC PNEUMONIA [None]
  - INTERSTITIAL LUNG DISEASE [None]
  - NAUSEA [None]
  - PNEUMOCYSTIS CARINII PNEUMONIA [None]
  - PNEUMONIA CYTOMEGALOVIRAL [None]
  - PNEUMONIA MYCOPLASMAL [None]
  - PO2 DECREASED [None]
  - PSEUDOMONAS INFECTION [None]
  - PYREXIA [None]
  - RESPIRATORY FAILURE [None]
  - TREATMENT NONCOMPLIANCE [None]
